FAERS Safety Report 5530120-X (Version None)
Quarter: 2007Q4

REPORT INFORMATION
  Report Type: 
  Country: None (occurrence: None)
  Receive Date: 20071130
  Receipt Date: 20071122
  Transmission Date: 20080405
  Serious: Yes (Other)
  Sender: FDA-Public Use
  Company Number: PHBS2007JP17749

PATIENT
  Age: 66 Year
  Sex: Male
  Weight: 75 kg

DRUGS (8)
  1. COMTAN [Suspect]
     Indication: PARKINSON'S DISEASE
     Dosage: 300 MG/D
     Route: 048
     Dates: start: 20070809, end: 20070920
  2. SYMMETREL [Concomitant]
     Indication: PARKINSON'S DISEASE
     Dosage: 150 MG/D
     Route: 048
     Dates: start: 20040820
  3. MADOPAR [Concomitant]
     Indication: PARKINSON'S DISEASE
     Dosage: 4.5 DF/D
     Route: 048
     Dates: start: 20040303
  4. FP [Concomitant]
     Indication: PARKINSON'S DISEASE
     Dosage: 5 MG/D
     Route: 048
     Dates: start: 20050819
  5. PRAMIPEXOLE DIHYDROCHLORIDE [Suspect]
     Indication: PARKINSON'S DISEASE
     Dosage: 3.5 MG
     Dates: start: 20070809
  6. PRAMIPEXOLE DIHYDROCHLORIDE [Suspect]
     Dosage: 7.0 TO 10.5 MG/D
     Route: 048
     Dates: start: 20070809
  7. CABERGOLINE [Concomitant]
     Indication: PARKINSON'S DISEASE
     Dosage: 3.5 MG/D
     Route: 048
     Dates: start: 20040324, end: 20070808
  8. EXCEGRAN [Concomitant]
     Dosage: 100 MG/D
     Route: 048
     Dates: start: 20070419

REACTIONS (7)
  - ALANINE AMINOTRANSFERASE INCREASED [None]
  - ASPARTATE AMINOTRANSFERASE INCREASED [None]
  - BLOOD ALKALINE PHOSPHATASE INCREASED [None]
  - HEPATIC CYST [None]
  - HEPATITIS [None]
  - HEPATITIS B ANTIBODY POSITIVE [None]
  - RENAL CYST [None]
